FAERS Safety Report 4637570-4 (Version None)
Quarter: 2005Q2

REPORT INFORMATION
  Report Type: 
  Country: None (occurrence: None)
  Receive Date: 20050325
  Receipt Date: 20041129
  Transmission Date: 20051028
  Serious: No
  Sender: FDA-Public Use
  Company Number: USA041184750

PATIENT
  Age: 69 Year
  Sex: Female

DRUGS (10)
  1. FORTEO [Suspect]
     Indication: OSTEOPOROSIS
     Dates: start: 20040701
  2. ZOCOR (SIMVASTATIN RATIOPHARM) [Concomitant]
  3. ENALAPRIL MALEATE [Concomitant]
  4. SPIRONOLACTONE (SPIRINOLACTONE) [Concomitant]
  5. PREVACID [Concomitant]
  6. IRON [Concomitant]
  7. VITAMIN D [Concomitant]
  8. MULTIVITAMIN [Concomitant]
  9. CALCIUM CARBONATE [Concomitant]
  10. ASPIRIN [Concomitant]

REACTIONS (3)
  - GENITAL HAEMORRHAGE [None]
  - GENITAL PRURITUS FEMALE [None]
  - VAGINAL BURNING SENSATION [None]
